FAERS Safety Report 15631198 (Version 2)
Quarter: 2019Q1

REPORT INFORMATION
  Report Type: Report from Study
  Country: US (occurrence: US)
  Receive Date: 20181119
  Receipt Date: 20190102
  Transmission Date: 20190417
  Serious: Yes (Hospitalization, Other)
  Sender: FDA-Public Use
  Company Number: US-ROCHE-2127813

PATIENT
  Age: 56 Year
  Sex: Female
  Weight: 87.62 kg

DRUGS (7)
  1. OCREVUS [Suspect]
     Active Substance: OCRELIZUMAB
     Dosage: HALF DOSE
     Route: 042
  2. BENADRYL [Concomitant]
     Active Substance: DIPHENHYDRAMINE HYDROCHLORIDE
     Dosage: ONGOING UNKNOWN
     Route: 065
     Dates: start: 201805
  3. RITUXAN [Suspect]
     Active Substance: RITUXIMAB
     Indication: PRODUCT USED FOR UNKNOWN INDICATION
     Route: 065
  4. OCREVUS [Suspect]
     Active Substance: OCRELIZUMAB
     Dosage: FULL DOSE
     Route: 042
     Dates: start: 20180504
  5. OCREVUS [Suspect]
     Active Substance: OCRELIZUMAB
     Indication: RELAPSING MULTIPLE SCLEROSIS
     Dosage: HALF DOSE
     Route: 042
     Dates: start: 201708
  6. OCREVUS [Suspect]
     Active Substance: OCRELIZUMAB
     Dosage: FULL DOSE
     Route: 042
     Dates: start: 20181106
  7. BENADRYL [Concomitant]
     Active Substance: DIPHENHYDRAMINE HYDROCHLORIDE
     Dosage: ONGOING UNKNOWN?ALSO USE AS TRETMENT DRUG
     Route: 065
     Dates: start: 20181106

REACTIONS (13)
  - Erythema [Recovered/Resolved]
  - Pneumonia [Recovered/Resolved]
  - Rash macular [Recovered/Resolved]
  - Pruritus [Recovered/Resolved]
  - Liver function test increased [Recovered/Resolved]
  - Sepsis [Recovered/Resolved]
  - Flushing [Recovered/Resolved]
  - Paraesthesia [Recovered/Resolved]
  - Pruritus [Recovered/Resolved]
  - Flushing [Unknown]
  - Depression [Unknown]
  - Liver disorder [Recovering/Resolving]
  - Fatigue [Not Recovered/Not Resolved]

NARRATIVE: CASE EVENT DATE: 201805
